FAERS Safety Report 25790731 (Version 1)
Quarter: 2025Q3

REPORT INFORMATION
  Report Type: Spontaneous
  Country: NZ (occurrence: NZ)
  Receive Date: 20250911
  Receipt Date: 20250911
  Transmission Date: 20251021
  Serious: Yes (Life-Threatening, Hospitalization, Disabling)
  Sender: BOEHRINGER INGELHEIM
  Company Number: NZ-BoehringerIngelheim-2025-BI-094666

PATIENT
  Age: 67 Year
  Sex: Female

DRUGS (1)
  1. EMPAGLIFLOZIN\METFORMIN HYDROCHLORIDE [Suspect]
     Active Substance: EMPAGLIFLOZIN\METFORMIN HYDROCHLORIDE
     Indication: Type 2 diabetes mellitus
     Dates: start: 202107, end: 2025

REACTIONS (1)
  - Fournier^s gangrene [Not Recovered/Not Resolved]

NARRATIVE: CASE EVENT DATE: 20250101
